FAERS Safety Report 4270283-X (Version None)
Quarter: 2004Q1

REPORT INFORMATION
  Report Type: 
  Country: None (occurrence: None)
  Receive Date: 20040113
  Receipt Date: 20040113
  Transmission Date: 20041129
  Serious: Yes (Hospitalization)
  Sender: FDA-Public Use
  Company Number: None

PATIENT
  Age: 40 Year
  Sex: Female
  Weight: 82.5547 kg

DRUGS (2)
  1. CYCLOPHOSPHAMIDE [Suspect]
     Dosage: 2 GM/M2
     Dates: start: 20040106, end: 20040107
  2. MESNA [Suspect]
     Dosage: 2 GM /M2
     Dates: start: 20040107, end: 20040108

REACTIONS (5)
  - BODY TEMPERATURE INCREASED [None]
  - DYSPNOEA [None]
  - FLUID OVERLOAD [None]
  - ORTHOPNOEA [None]
  - WHEEZING [None]
